FAERS Safety Report 7522814-1 (Version None)
Quarter: 2011Q2

REPORT INFORMATION
  Report Type: 
  Country: None (occurrence: None)
  Receive Date: 20110603
  Receipt Date: 20110531
  Transmission Date: 20111010
  Serious: Yes (Other)
  Sender: FDA-Public Use
  Company Number: BR-PFIZER INC-2011021710

PATIENT
  Sex: Female
  Weight: 80 kg

DRUGS (5)
  1. NEURONTIN [Suspect]
     Dosage: 400MG, UNK
     Dates: start: 20110101
  2. ATENOLOL [Concomitant]
     Indication: HYPERTENSION
     Dosage: UNK
  3. FLUOXETINE [Concomitant]
     Indication: DEPRESSION
     Dosage: UNK
  4. NEURONTIN [Suspect]
     Indication: NEURALGIA
     Dosage: 300MG, UNK
     Route: 048
     Dates: start: 20100101
  5. CLONAZEPAM [Concomitant]
     Indication: DEPRESSION
     Dosage: UNK

REACTIONS (5)
  - HYPERSENSITIVITY [None]
  - INCREASED UPPER AIRWAY SECRETION [None]
  - DYSPHONIA [None]
  - COUGH [None]
  - WOUND [None]
